FAERS Safety Report 24712871 (Version 1)
Quarter: 2024Q4

REPORT INFORMATION
  Report Type: Spontaneous
  Country: US (occurrence: None)
  Receive Date: 20241208
  Receipt Date: 20241208
  Transmission Date: 20250115
  Serious: Yes (Disabling)
  Sender: Public
  Company Number: None

PATIENT
  Age: 21 Year
  Sex: Female
  Weight: 63 kg

DRUGS (5)
  1. DUPIXENT [Suspect]
     Active Substance: DUPILUMAB
     Indication: Neurodermatitis
     Dates: start: 20240701
  2. SPIRONOLACTONE [Concomitant]
     Active Substance: SPIRONOLACTONE
  3. DUPIXENT [Concomitant]
     Active Substance: DUPILUMAB
  4. METHYLPHENIDATE [Concomitant]
     Active Substance: METHYLPHENIDATE
  5. ESCITALOPRAM [Concomitant]
     Active Substance: ESCITALOPRAM OXALATE

REACTIONS (9)
  - Injection site pain [None]
  - Eye inflammation [None]
  - Periorbital dermatitis [None]
  - Angular cheilitis [None]
  - Myalgia [None]
  - Abdominal pain upper [None]
  - Diarrhoea [None]
  - Dry skin [None]
  - Dry eye [None]

NARRATIVE: CASE EVENT DATE: 20241202
